FAERS Safety Report 10061146 (Version 2)
Quarter: 2014Q2

REPORT INFORMATION
  Report Type: Spontaneous
  Country: US (occurrence: US)
  Receive Date: 20140406
  Receipt Date: 20140603
  Transmission Date: 20141212
  Serious: Yes (Death)
  Sender: FDA-Public Use
  Company Number: US-BRISTOL-MYERS SQUIBB COMPANY-20592861

PATIENT
  Age: 69 Year
  Sex: Female

DRUGS (8)
  1. BYETTA [Suspect]
     Dates: start: 20070811, end: 20070910
  2. JANUMET [Suspect]
     Dosage: 1DF=50/100MCG
     Dates: start: 20080814, end: 20120505
  3. AVAPRO [Concomitant]
  4. TRAMADOL [Concomitant]
     Dosage: 1DF=1-2
  5. NEXIUM [Concomitant]
  6. GLUCERNA [Concomitant]
     Dosage: 1DF=1-2
  7. CLARITIN D [Concomitant]
     Indication: NASAL CONGESTION
  8. PROCHLORPERAZINE [Concomitant]
     Indication: NAUSEA
     Dosage: EVERY 6 HOURS
     Route: 048

REACTIONS (2)
  - Pancreatic carcinoma [Fatal]
  - Metastases to liver [Fatal]
